FAERS Safety Report 13007801 (Version 2)
Quarter: 2016Q4

REPORT INFORMATION
  Report Type: Spontaneous
  Country: US (occurrence: US)
  Receive Date: 20161207
  Receipt Date: 20161216
  Transmission Date: 20170207
  Serious: Yes (Death, Other)
  Sender: FDA-Public Use
  Company Number: US-009507513-1612USA002058

PATIENT
  Sex: Male

DRUGS (2)
  1. KEYTRUDA [Suspect]
     Active Substance: PEMBROLIZUMAB
     Indication: SQUAMOUS CELL CARCINOMA
     Dosage: 100 MG, EVERY 3 WEEKS
     Route: 042
     Dates: start: 2016
  2. OXYCODONE [Concomitant]
     Active Substance: OXYCODONE

REACTIONS (2)
  - Malignant neoplasm progression [Fatal]
  - Rash [Recovered/Resolved]

NARRATIVE: CASE EVENT DATE: 2016
